FAERS Safety Report 15710685 (Version 1)
Quarter: 2018Q4

REPORT INFORMATION
  Report Type: Spontaneous
  Country: US (occurrence: US)
  Receive Date: 20181211
  Receipt Date: 20181211
  Transmission Date: 20190205
  Serious: Yes (Disabling)
  Sender: FDA-Public Use
  Company Number: US-SAKK-2018SA328628AA

PATIENT
  Age: 68 Year
  Sex: Female

DRUGS (2)
  1. LANTUS SOLOSTAR [Suspect]
     Active Substance: INSULIN GLARGINE
     Indication: TYPE 1 DIABETES MELLITUS
     Dosage: UNK
     Route: 065
     Dates: start: 2000
  2. NOVOLOG [Concomitant]
     Active Substance: INSULIN ASPART
     Dosage: 20 IU, EACH MEAL
     Route: 065

REACTIONS (3)
  - Emotional disorder [Unknown]
  - Product quality issue [Unknown]
  - Frustration tolerance decreased [Unknown]
